FAERS Safety Report 5523759-9 (Version None)
Quarter: 2007Q4

REPORT INFORMATION
  Report Type: 
  Country: None (occurrence: None)
  Receive Date: 20071116
  Receipt Date: 20071109
  Transmission Date: 20080405
  Serious: Yes (Hospitalization, Disabling)
  Sender: FDA-Public Use
  Company Number: OSCN-NO-0204S-0042

PATIENT
  Age: 48 Year
  Sex: Male

DRUGS (11)
  1. OMNISCAN [Suspect]
     Indication: DRUG USE FOR UNKNOWN INDICATION
     Dosage: 48 ML, SINGLE DOSE, I.V.
     Route: 042
     Dates: start: 20020103, end: 20020103
  2. RENAGEL [Concomitant]
  3. DILTIAZEM (TILKER) [Concomitant]
  4. ENALAPRIL (CORODIL) [Concomitant]
  5. ALFACALCIDOL (ETALPHA) [Concomitant]
  6. EPOGEN [Concomitant]
  7. APOZEPAM [Concomitant]
  8. IMOSOP [Concomitant]
  9. B-COMBIN [Concomitant]
  10. ASCORBIC ACID [Concomitant]
  11. FOLIC ACID [Concomitant]

REACTIONS (3)
  - AZOTAEMIA [None]
  - HAEMODIALYSIS [None]
  - NEPHROGENIC SYSTEMIC FIBROSIS [None]
